FAERS Safety Report 10268797 (Version 1)
Quarter: 2014Q2

REPORT INFORMATION
  Report Type: Spontaneous
  Country: GB (occurrence: GB)
  Receive Date: 20140630
  Receipt Date: 20140630
  Transmission Date: 20141212
  Serious: Yes (Other)
  Sender: FDA-Public Use
  Company Number: GB-MYLANLABS-2014S1014477

PATIENT
  Sex: 0

DRUGS (16)
  1. FLUCONAZOLE [Suspect]
     Indication: ASPERGILLUS INFECTION
  2. FLUCONAZOLE [Suspect]
     Indication: SYSTEMIC CANDIDA
  3. FLUCONAZOLE [Suspect]
     Indication: ASPERGILLUS INFECTION
     Dosage: }200 MG
     Route: 048
  4. FLUCONAZOLE [Suspect]
     Indication: SYSTEMIC CANDIDA
     Dosage: }200 MG
     Route: 048
  5. AMBISOME [Suspect]
     Indication: ASPERGILLUS INFECTION
  6. AMBISOME [Suspect]
     Indication: SYSTEMIC CANDIDA
  7. AMBISOME [Suspect]
     Indication: ASPERGILLUS INFECTION
     Dosage: INJECTION
  8. AMBISOME [Suspect]
     Indication: SYSTEMIC CANDIDA
     Dosage: INJECTION
  9. POSACONAZOLE [Suspect]
     Indication: SYSTEMIC CANDIDA
     Route: 048
  10. POSACONAZOLE [Suspect]
     Indication: ASPERGILLUS INFECTION
     Route: 048
  11. POSACONAZOLE [Suspect]
     Indication: SYSTEMIC CANDIDA
  12. POSACONAZOLE [Suspect]
     Indication: ASPERGILLUS INFECTION
  13. VFEND [Suspect]
     Indication: ASPERGILLUS INFECTION
  14. VFEND [Suspect]
     Indication: SYSTEMIC CANDIDA
  15. VFEND [Suspect]
     Indication: ASPERGILLUS INFECTION
     Route: 048
  16. VFEND [Suspect]
     Indication: SYSTEMIC CANDIDA
     Route: 048

REACTIONS (2)
  - Off label use [Unknown]
  - Neutropenia [Unknown]
